FAERS Safety Report 11295948 (Version 1)
Quarter: 2015Q3

REPORT INFORMATION
  Report Type: Spontaneous
  Country: US (occurrence: None)
  Receive Date: 20150722
  Receipt Date: 20150722
  Transmission Date: 20151125
  Serious: No
  Sender: FDA-Public Use
  Company Number: None

PATIENT
  Age: 60 Year
  Sex: Male
  Weight: 92.7 kg

DRUGS (2)
  1. HYDROCHLOROTHIAZIDE/LISINOPRIL [Suspect]
     Active Substance: HYDROCHLOROTHIAZIDE\LISINOPRIL
     Indication: HYPERTENSION
     Dosage: 25/20 MG EVERY DAY PO
     Route: 048
     Dates: start: 20110526, end: 20120712
  2. METFORMIN [Suspect]
     Active Substance: METFORMIN HYDROCHLORIDE
     Route: 048
     Dates: start: 20110526, end: 20120712

REACTIONS (5)
  - Acute kidney injury [None]
  - Lactic acidosis [None]
  - Renal tubular necrosis [None]
  - Metabolic acidosis [None]
  - Prerenal failure [None]

NARRATIVE: CASE EVENT DATE: 20120712
